FAERS Safety Report 7808597-6 (Version None)
Quarter: 2011Q4

REPORT INFORMATION
  Report Type: 
  Country: None (occurrence: None)
  Receive Date: 20111012
  Receipt Date: 20111007
  Transmission Date: 20120403
  Serious: No
  Sender: FDA-Public Use
  Company Number: US-PFIZER INC-2011192339

PATIENT
  Sex: Female
  Weight: 53.968 kg

DRUGS (7)
  1. LEXAPRO [Concomitant]
     Dosage: 5 MG, DAILY
  2. OMEPRAZOLE [Concomitant]
     Dosage: 40 MG, 2X/DAY
  3. NEURONTIN [Suspect]
     Indication: PAIN
     Dosage: 100 MG, 3X/DAY
     Route: 048
     Dates: start: 20110810
  4. ALENDRONATE SODIUM [Concomitant]
     Dosage: 70 MG, WEEKLY
  5. VICODIN [Suspect]
     Indication: NEURALGIA
     Dosage: 10MG/660MG  EVERY 6 HOURS
     Route: 048
  6. IBUPROFEN (ADVIL) [Concomitant]
     Indication: PAIN
     Dosage: UNK
     Route: 048
  7. TOPAMAX [Concomitant]
     Indication: MIGRAINE
     Dosage: 50 MG, 1X/DAY
     Route: 048

REACTIONS (4)
  - FLATULENCE [None]
  - BACK PAIN [None]
  - MUSCLE SPASMS [None]
  - CONSTIPATION [None]
